FAERS Safety Report 11146237 (Version 1)
Quarter: 2015Q2

REPORT INFORMATION
  Report Type: Report from Study
  Country: US (occurrence: US)
  Receive Date: 20150528
  Receipt Date: 20150528
  Transmission Date: 20150821
  Serious: Yes (Other)
  Sender: FDA-Public Use
  Company Number: PHHO2009US05722

PATIENT
  Age: 66 Year
  Sex: Male
  Weight: 77.5 kg

DRUGS (12)
  1. SENOKOT-S [Concomitant]
     Active Substance: DOCUSATE SODIUM\SENNOSIDES
     Indication: PRODUCT USED FOR UNKNOWN INDICATION
     Dosage: UNK
     Route: 065
  2. SENNA-S (DOCUSATE SODIUM/SENNOSIDES) [Concomitant]
     Indication: CONSTIPATION
     Dosage: UNK
     Route: 065
  3. GLIPIZIDE. [Concomitant]
     Active Substance: GLIPIZIDE
     Indication: PRODUCT USED FOR UNKNOWN INDICATION
     Dosage: UNK
     Route: 065
  4. ACYCLOVIR. [Concomitant]
     Active Substance: ACYCLOVIR
     Indication: PRODUCT USED FOR UNKNOWN INDICATION
     Dosage: UNK
     Route: 065
  5. AFINITOR [Suspect]
     Active Substance: EVEROLIMUS
     Indication: MANTLE CELL LYMPHOMA
     Dosage: 5 MG, QOD (EVERY OTHER DAY)
     Route: 048
     Dates: start: 20080711, end: 20090428
  6. K-PHOS [Concomitant]
     Active Substance: POTASSIUM PHOSPHATE, MONOBASIC
     Indication: PRODUCT USED FOR UNKNOWN INDICATION
     Dosage: UNK
     Route: 065
  7. ROSUVASTATIN [Concomitant]
     Active Substance: ROSUVASTATIN
     Indication: PRODUCT USED FOR UNKNOWN INDICATION
     Dosage: UNK
     Route: 065
  8. ECOTRIN [Concomitant]
     Active Substance: ASPIRIN
     Indication: PRODUCT USED FOR UNKNOWN INDICATION
     Dosage: UNK
     Route: 065
  9. BORTEZOMIB [Suspect]
     Active Substance: BORTEZOMIB
     Indication: MANTLE CELL LYMPHOMA
     Dosage: 1.3 MG, (DAY 1,4,8, 11 EVERY 28 DAYS)
     Route: 042
     Dates: start: 20080708, end: 20090416
  10. CRESTOR [Concomitant]
     Active Substance: ROSUVASTATIN CALCIUM
     Indication: BLOOD TRIGLYCERIDES
     Dosage: UNK
     Route: 065
  11. GLUCOPHAGE [Concomitant]
     Active Substance: METFORMIN HYDROCHLORIDE
     Indication: PRODUCT USED FOR UNKNOWN INDICATION
     Dosage: UNK
     Route: 065
  12. POTASSIUM PHOSPHATE MONOBASIC [Concomitant]
     Active Substance: POTASSIUM PHOSPHATE, MONOBASIC
     Indication: PRODUCT USED FOR UNKNOWN INDICATION
     Dosage: UNK
     Route: 065

REACTIONS (17)
  - Diastolic dysfunction [Recovering/Resolving]
  - Coronary artery disease [Recovering/Resolving]
  - Cardiac failure acute [Recovering/Resolving]
  - Left ventricular hypertrophy [Recovering/Resolving]
  - Left ventricular dysfunction [Recovering/Resolving]
  - Dyspnoea exertional [Recovering/Resolving]
  - Dyspnoea paroxysmal nocturnal [Recovering/Resolving]
  - Dizziness [Recovering/Resolving]
  - Orthopnoea [Recovering/Resolving]
  - Heart sounds abnormal [Recovering/Resolving]
  - Sinus tachycardia [Recovering/Resolving]
  - Left atrial dilatation [Recovering/Resolving]
  - Right atrial dilatation [Recovering/Resolving]
  - Pericardial effusion [Recovering/Resolving]
  - Cardiac murmur [Recovering/Resolving]
  - Cardiomyopathy [Recovering/Resolving]
  - Dilatation ventricular [Recovering/Resolving]

NARRATIVE: CASE EVENT DATE: 20090428
